FAERS Safety Report 24732840 (Version 1)
Quarter: 2024Q4

REPORT INFORMATION
  Report Type: Spontaneous
  Country: PT (occurrence: PT)
  Receive Date: 20241213
  Receipt Date: 20241213
  Transmission Date: 20250114
  Serious: Yes (Death, Hospitalization)
  Sender: NOVARTIS
  Company Number: PT-PHARMALEX-2024000287

PATIENT
  Age: 51 Year
  Sex: Male

DRUGS (10)
  1. EVEROLIMUS [Suspect]
     Active Substance: EVEROLIMUS
     Indication: Immunosuppressant drug therapy
     Dosage: UNK
     Route: 065
  2. CYCLOSPORINE [Suspect]
     Active Substance: CYCLOSPORINE
     Indication: Product used for unknown indication
     Dosage: UNK
     Route: 065
  3. TACROLIMUS [Suspect]
     Active Substance: TACROLIMUS
     Indication: Immunosuppressant drug therapy
     Dosage: UNK
     Route: 065
  4. PREDNISOLONE [Suspect]
     Active Substance: PREDNISOLONE
     Indication: Immunosuppressant drug therapy
     Dosage: UNK
     Route: 065
  5. GANCICLOVIR [Suspect]
     Active Substance: GANCICLOVIR
     Indication: Cytomegalovirus colitis
     Dosage: UNK
     Route: 065
  6. GANCICLOVIR [Suspect]
     Active Substance: GANCICLOVIR
     Indication: Epstein-Barr virus infection
  7. GANCICLOVIR [Suspect]
     Active Substance: GANCICLOVIR
     Indication: Enterocolitis viral
  8. GANCICLOVIR [Suspect]
     Active Substance: GANCICLOVIR
     Indication: Evidence based treatment
  9. METRONIDAZOLE [Suspect]
     Active Substance: METRONIDAZOLE
     Indication: Antibiotic prophylaxis
     Dosage: UNK
     Route: 065
  10. CIPROFLOXACIN [Suspect]
     Active Substance: CIPROFLOXACIN
     Indication: Antibiotic prophylaxis
     Dosage: UNK
     Route: 065

REACTIONS (5)
  - Epstein-Barr virus infection [Fatal]
  - Enterocolitis viral [Fatal]
  - Pyrexia [Fatal]
  - Abdominal pain [Fatal]
  - Diarrhoea haemorrhagic [Fatal]
